FAERS Safety Report 13869937 (Version 1)
Quarter: 2017Q3

REPORT INFORMATION
  Report Type: Spontaneous
  Country: GB (occurrence: GB)
  Receive Date: 20170815
  Receipt Date: 20170815
  Transmission Date: 20171127
  Serious: Yes (Other)
  Sender: FDA-Public Use
  Company Number: GB-TEVA-795011ACC

PATIENT
  Age: 69 Year

DRUGS (1)
  1. OXALIPLATIN  INFUSION [Suspect]
     Active Substance: OXALIPLATIN
     Indication: CHEMOTHERAPY
     Dates: start: 20170302, end: 20170302

REACTIONS (3)
  - Speech disorder [Unknown]
  - Rhinitis [Unknown]
  - Blood pressure decreased [Unknown]

NARRATIVE: CASE EVENT DATE: 20170302
